FAERS Safety Report 5834723-4 (Version None)
Quarter: 2008Q3

REPORT INFORMATION
  Report Type: 
  Country: None (occurrence: None)
  Receive Date: 20080801
  Receipt Date: 20080718
  Transmission Date: 20090109
  Serious: Yes (Hospitalization)
  Sender: FDA-Public Use
  Company Number: 2008BI015433

PATIENT
  Age: 39 Year
  Sex: Female

DRUGS (21)
  1. TYSABRI [Suspect]
     Indication: MULTIPLE SCLEROSIS
     Dosage: 300 MG;QM;IV
     Route: 042
     Dates: start: 20061115, end: 20080501
  2. BOTOX [Concomitant]
  3. ORTHO CYCLEN-21 [Concomitant]
  4. SYNTHROID [Concomitant]
  5. ADDERALL 10 [Concomitant]
  6. NEURONTIN [Concomitant]
  7. ZONEGRAN [Concomitant]
  8. RELPAX [Concomitant]
  9. ALPRAZOLAM [Concomitant]
  10. ZOFRAN [Concomitant]
  11. COUMADIN [Concomitant]
  12. DULCOLAX [Concomitant]
  13. PROCRIT [Concomitant]
  14. TOPAMAX [Concomitant]
  15. LIDODERM [Concomitant]
  16. FLUOXETINE HCL [Concomitant]
  17. HYDROCODONE BITARTRATE [Concomitant]
  18. OXYCONTIN [Concomitant]
  19. ULTRAM ER [Concomitant]
  20. BACLOFEN [Concomitant]
  21. BACTRIM [Concomitant]

REACTIONS (6)
  - CONSTIPATION [None]
  - GASTROINTESTINAL MOTILITY DISORDER [None]
  - HYPOALBUMINAEMIA [None]
  - INFECTION [None]
  - PERITONEAL ABSCESS [None]
  - RECTAL PROLAPSE [None]
